FAERS Safety Report 23359323 (Version 1)
Quarter: 2024Q1

REPORT INFORMATION
  Report Type: Spontaneous
  Country: US (occurrence: US)
  Receive Date: 20240102
  Receipt Date: 20240102
  Transmission Date: 20240410
  Serious: No
  Sender: FDA-Public Use
  Company Number: US-SA-SAC20231226001173

PATIENT
  Age: 16 Year
  Sex: Male
  Weight: 68.03 kg

DRUGS (1)
  1. DUPIXENT [Suspect]
     Active Substance: DUPILUMAB
     Indication: Dermatitis
     Dosage: DOSE AND ROUTE PRESCRIBED: 300MG UNDER THE SKIN FREQUENCY : EVERY 2 WEEKS
     Route: 058

REACTIONS (4)
  - Dermatitis [Unknown]
  - Rash [Unknown]
  - Pruritus [Unknown]
  - Drug ineffective for unapproved indication [Unknown]

NARRATIVE: CASE EVENT DATE: 20231001
